FAERS Safety Report 4962887-3 (Version None)
Quarter: 2006Q2

REPORT INFORMATION
  Report Type: 
  Country: None (occurrence: None)
  Receive Date: 20060405
  Receipt Date: 20060330
  Transmission Date: 20061013
  Serious: Yes (Life-Threatening)
  Sender: FDA-Public Use
  Company Number: PHBS2006NO04791

PATIENT
  Age: 33 Year
  Sex: Female

DRUGS (1)
  1. VOLTAREN [Suspect]
     Indication: PAIN
     Dosage: 50 MG, TID
     Dates: start: 20060317, end: 20060318

REACTIONS (1)
  - POST PROCEDURAL HAEMORRHAGE [None]
